FAERS Safety Report 17217103 (Version 1)
Quarter: 2019Q4

REPORT INFORMATION
  Report Type: Report from Study
  Country: IT (occurrence: IT)
  Receive Date: 20191231
  Receipt Date: 20191231
  Transmission Date: 20200122
  Serious: Yes (Other)
  Sender: FDA-Public Use
  Company Number: IT-BRISTOL-MYERS SQUIBB COMPANY-BMS-2019-121767

PATIENT
  Age: 72 Year
  Sex: Male

DRUGS (2)
  1. WARFARIN SODIUM. [Suspect]
     Active Substance: WARFARIN SODIUM
     Indication: ISCHAEMIA
     Dosage: 1 DOSAGE FORM,AS NECESSARY FOR ISCHEMIA
     Route: 048
     Dates: start: 20130101
  2. PANTORC [Concomitant]
     Active Substance: PANTOPRAZOLE SODIUM
     Indication: CHRONIC GASTRITIS
     Dosage: 1 DOSAGE FORM
     Route: 048
     Dates: start: 20130101

REACTIONS (2)
  - International normalised ratio increased [Recovering/Resolving]
  - Product monitoring error [Recovering/Resolving]

NARRATIVE: CASE EVENT DATE: 20191126
